FAERS Safety Report 4388936-1 (Version None)
Quarter: 2004Q3

REPORT INFORMATION
  Report Type: 
  Country: None (occurrence: None)
  Receive Date: 20040701
  Receipt Date: 20040701
  Transmission Date: 20050211
  Serious: Yes (Other)
  Sender: FDA-Public Use
  Company Number: None

PATIENT
  Age: 77 Year
  Sex: Female
  Weight: 62.1428 kg

DRUGS (8)
  1. ACTONEL [Suspect]
     Indication: OSTEOPOROSIS
     Dosage: 1 TAB ONCE A WEE ORAL
     Route: 048
     Dates: start: 20040201, end: 20040301
  2. ESTRATEST [Concomitant]
  3. LUMIGAN [Concomitant]
  4. TIMOLOL MALEATE [Concomitant]
  5. TEMAZEPAM [Concomitant]
  6. GLUCOSAMINE [Concomitant]
  7. ALPRAZOLAM [Concomitant]
  8. PREVACID [Concomitant]

REACTIONS (1)
  - PALPITATIONS [None]
